FAERS Safety Report 5924896-7 (Version None)
Quarter: 2008Q4

REPORT INFORMATION
  Report Type: 
  Country: None (occurrence: None)
  Receive Date: 20081017
  Receipt Date: 20081017
  Transmission Date: 20090506
  Serious: Yes (Hospitalization, Disabling)
  Sender: FDA-Public Use
  Company Number: None

PATIENT
  Sex: Female
  Weight: 61.6892 kg

DRUGS (1)
  1. ACTOS [Suspect]
     Indication: TYPE 2 DIABETES MELLITUS
     Dosage: 30MG  DAILY PO
     Route: 048
     Dates: start: 20080614, end: 20080928

REACTIONS (2)
  - ACUTE MYOCARDIAL INFARCTION [None]
  - CORONARY ARTERY OCCLUSION [None]
